FAERS Safety Report 14639447 (Version 1)
Quarter: 2018Q1

REPORT INFORMATION
  Report Type: Spontaneous
  Country: FR (occurrence: FR)
  Receive Date: 20180315
  Receipt Date: 20180315
  Transmission Date: 20180509
  Serious: Yes (Hospitalization, Other)
  Sender: FDA-Public Use
  Company Number: FR-MERCK KGAA-2043783

PATIENT
  Age: 36 Year
  Sex: Female

DRUGS (1)
  1. NOVOTHYROX [Suspect]
     Active Substance: LEVOTHYROXINE SODIUM
     Indication: PRODUCT USED FOR UNKNOWN INDICATION

REACTIONS (12)
  - Loss of personal independence in daily activities [None]
  - Psychiatric symptom [None]
  - Fatigue [None]
  - Migraine [None]
  - Blood thyroid stimulating hormone decreased [None]
  - Mental fatigue [None]
  - Alopecia [None]
  - Hyperthyroidism [None]
  - Decreased interest [None]
  - Chest pain [None]
  - Weight increased [None]
  - Palpitations [None]

NARRATIVE: CASE EVENT DATE: 20171010
